FAERS Safety Report 4687286-3 (Version None)
Quarter: 2005Q2

REPORT INFORMATION
  Report Type: 
  Country: None (occurrence: None)
  Receive Date: 20050608
  Receipt Date: 20050524
  Transmission Date: 20051028
  Serious: Yes (Hospitalization)
  Sender: FDA-Public Use
  Company Number: 2005BI003600

PATIENT
  Age: 62 Year
  Sex: Female

DRUGS (24)
  1. AVONEX [Suspect]
     Indication: MULTIPLE SCLEROSIS
     Dates: start: 20040401
  2. DETROL LA [Concomitant]
  3. QUININE [Concomitant]
  4. NEURONTIN [Concomitant]
  5. PREMARIN [Concomitant]
  6. AMITRIPTYLINE [Concomitant]
  7. AMBIEN [Concomitant]
  8. ZOFRAN [Concomitant]
  9. IBUPROFEN [Concomitant]
  10. DURAGESIC-100 [Concomitant]
  11. ENDOCET [Concomitant]
  12. PREDNISONE TAB [Concomitant]
  13. GENERIC ACID REDUCER [Concomitant]
  14. STOOL SOFTENER [Concomitant]
  15. VITAMIN E [Concomitant]
  16. POTASSIUM CHLORIDE [Concomitant]
  17. CALCIUM GLUCONATE [Concomitant]
  18. MAGNESIUM [Concomitant]
  19. ASCORBIC ACID [Concomitant]
  20. CRANBERRY SUPPLEMENT [Concomitant]
  21. GLUCOSAMINE [Concomitant]
  22. CHONDROITON [Concomitant]
  23. MSM [Concomitant]
  24. CELEBREX [Concomitant]

REACTIONS (1)
  - BLOOD POTASSIUM DECREASED [None]
